FAERS Safety Report 6379172-8 (Version None)
Quarter: 2009Q3

REPORT INFORMATION
  Report Type: 
  Country: None (occurrence: None)
  Receive Date: 20090923
  Receipt Date: 20090923
  Transmission Date: 20100115
  Serious: No
  Sender: FDA-Public Use
  Company Number: None

PATIENT
  Age: 28 Year
  Sex: Male

DRUGS (2)
  1. TRAZODONE HCL [Suspect]
     Indication: AFFECTIVE DISORDER
     Dosage: 50MG QD PO  (LESS THAN 1 MONTH)
     Route: 048
     Dates: start: 20090601, end: 20090610
  2. TRAZODONE HCL [Suspect]
     Indication: DEPRESSION
     Dosage: 50MG QD PO  (LESS THAN 1 MONTH)
     Route: 048
     Dates: start: 20090601, end: 20090610

REACTIONS (3)
  - INCOHERENT [None]
  - LOSS OF CONSCIOUSNESS [None]
  - SOMNAMBULISM [None]
